FAERS Safety Report 4374961-3 (Version None)
Quarter: 2004Q2

REPORT INFORMATION
  Report Type: 
  Country: None (occurrence: None)
  Receive Date: 20040608
  Receipt Date: 20040216
  Transmission Date: 20050107
  Serious: Yes (Hospitalization)
  Sender: FDA-Public Use
  Company Number: PHEH2004US01955

PATIENT
  Age: 6 Year
  Sex: Female

DRUGS (2)
  1. FOCALIN [Suspect]
     Indication: ATTENTION DEFICIT/HYPERACTIVITY DISORDER
     Dosage: 5 MG, QD, ORAL
     Route: 048
     Dates: start: 20040209
  2. AMOXIL [Concomitant]

REACTIONS (1)
  - TACHYCARDIA [None]
